FAERS Safety Report 21904306 (Version 2)
Quarter: 2023Q1

REPORT INFORMATION
  Report Type: Report from Study
  Country: US (occurrence: US)
  Receive Date: 20230124
  Receipt Date: 20230207
  Transmission Date: 20230418
  Serious: Yes (Other)
  Sender: FDA-Public Use
  Company Number: US-HORIZON THERAPEUTICS-HZN-2023-000485

PATIENT

DRUGS (1)
  1. KRYSTEXXA [Suspect]
     Active Substance: PEGLOTICASE
     Indication: Gout
     Dosage: FIRST DOSE
     Route: 065
     Dates: start: 20201214

REACTIONS (3)
  - Nephrolithiasis [Recovered/Resolved]
  - Kidney infection [Unknown]
  - Dysuria [Unknown]

NARRATIVE: CASE EVENT DATE: 20230118
